FAERS Safety Report 17033072 (Version 1)
Quarter: 2019Q4

REPORT INFORMATION
  Report Type: Spontaneous
  Country: US (occurrence: US)
  Receive Date: 20191014
  Receipt Date: 20191014
  Transmission Date: 20200122
  Serious: Yes (Hospitalization)
  Sender: FDA-Public Use
  Company Number: None

PATIENT
  Age: 59 Year
  Sex: Male

DRUGS (12)
  1. HYDROCO/APAP [Concomitant]
     Active Substance: ACETAMINOPHEN\HYDROCODONE
  2. AMLODIPINE [Concomitant]
     Active Substance: AMLODIPINE BESYLATE
  3. ENALAPRIL [Concomitant]
     Active Substance: ENALAPRIL
  4. SIMVASTATIN. [Concomitant]
     Active Substance: SIMVASTATIN
  5. GENTLE LAXAT [Concomitant]
  6. ONDANSETRON [Concomitant]
     Active Substance: ONDANSETRON
  7. AMOXICILLIN. [Concomitant]
     Active Substance: AMOXICILLIN
  8. AMOX/K CLAV [Concomitant]
     Active Substance: AMOXICILLIN\CLAVULANATE POTASSIUM
  9. HUMIRA [Suspect]
     Active Substance: ADALIMUMAB
     Indication: CROHN^S DISEASE
     Dosage: ?          OTHER DOSE:40MG/0.8ML;?
     Route: 058
     Dates: start: 20180416, end: 20191011
  10. DEXAMETHASON [Concomitant]
     Active Substance: DEXAMETHASONE
  11. PEG-3350/KCL SOL/SODIUM [Concomitant]
  12. NOVOLOG MIX INJ FLEXPEN [Concomitant]

REACTIONS (1)
  - Knee operation [None]

NARRATIVE: CASE EVENT DATE: 20190717
